FAERS Safety Report 9323614 (Version 1)
Quarter: 2013Q2

REPORT INFORMATION
  Report Type: Spontaneous
  Country: BR (occurrence: BR)
  Receive Date: 20130603
  Receipt Date: 20130603
  Transmission Date: 20140414
  Serious: Yes (Hospitalization)
  Sender: FDA-Public Use
  Company Number: BR-JNJFOC-20130520931

PATIENT
  Age: 34 Year
  Sex: Male
  Weight: 87 kg

DRUGS (2)
  1. XARELTO [Suspect]
     Indication: EMBOLISM VENOUS
     Route: 048
     Dates: start: 20121204
  2. XARELTO [Suspect]
     Indication: THROMBOSIS
     Route: 048
     Dates: start: 20121204

REACTIONS (2)
  - Pulmonary embolism [Not Recovered/Not Resolved]
  - Incorrect dose administered [Unknown]
